FAERS Safety Report 6879401-8 (Version None)
Quarter: 2010Q3

REPORT INFORMATION
  Report Type: 
  Country: None (occurrence: None)
  Receive Date: 20100728
  Receipt Date: 20100715
  Transmission Date: 20110219
  Serious: Yes (Hospitalization)
  Sender: FDA-Public Use
  Company Number: FR-ELI_LILLY_AND_COMPANY-FR201007003700

PATIENT
  Sex: Female
  Weight: 59 kg

DRUGS (3)
  1. PEMETREXED [Suspect]
     Indication: NON-SMALL CELL LUNG CANCER
     Dosage: 500 MG/M2, DAY ONE EVERY 21 DAYS
     Route: 042
     Dates: start: 20091021, end: 20091222
  2. CISPLATIN [Suspect]
     Indication: NON-SMALL CELL LUNG CANCER
     Dosage: 75 MG/M2, DAY ONE EVERY 21 DAYS
     Route: 042
     Dates: start: 20091021, end: 20091222
  3. PEMETREXED [Suspect]
     Dosage: DAY ONE EVERY 21 DAYS
     Route: 042
     Dates: start: 20100113, end: 20100520

REACTIONS (1)
  - PERICARDITIS [None]
